FAERS Safety Report 8830412 (Version 1)
Quarter: 2012Q4

REPORT INFORMATION
  Report Type: 
  Country: US (occurrence: US)
  Receive Date: 20121009
  Receipt Date: 20121009
  Transmission Date: 20130627
  Serious: No
  Sender: FDA-Public Use
  Company Number: US-BAYER-2012-103482

PATIENT
  Age: 78 Year
  Sex: Male
  Weight: 68 kg

DRUGS (3)
  1. ALEVE CAPLET/TABLET,MIDOL EXTENDED RELIEF CAPLET [Suspect]
     Indication: PAIN
     Dosage: 2 DF, PRN
     Route: 048
  2. BAYER CHEWABLE LOW DOSE BABY ASPIRIN TABLET ORANGE [Concomitant]
     Indication: ISCHAEMIC HEART DISEASE PROPHYLAXIS
  3. ARGININE [Concomitant]

REACTIONS (1)
  - Pain [None]
